FAERS Safety Report 11336697 (Version 1)
Quarter: 2015Q3

REPORT INFORMATION
  Report Type: Report from Study
  Country: BR (occurrence: BR)
  Receive Date: 20150804
  Receipt Date: 20150804
  Transmission Date: 20151125
  Serious: Yes (Hospitalization)
  Sender: FDA-Public Use
  Company Number: BR-BAXALTA-2015BLT000807

PATIENT
  Age: 14 Year
  Weight: 61 kg

DRUGS (1)
  1. FACTOR VIII INHIBITOR BYPASSING FRACTION UNSPECIFIED [Suspect]
     Active Substance: ANTI-INHIBITOR COAGULANT COMPLEX
     Indication: PROPHYLAXIS
     Dosage: UNK
     Route: 065
     Dates: start: 20080920

REACTIONS (2)
  - Haemarthrosis [Recovered/Resolved]
  - Oedema peripheral [Recovered/Resolved]

NARRATIVE: CASE EVENT DATE: 20150720
